FAERS Safety Report 18586651 (Version 1)
Quarter: 2020Q4

REPORT INFORMATION
  Report Type: Spontaneous
  Country: US (occurrence: US)
  Receive Date: 20201207
  Receipt Date: 20201207
  Transmission Date: 20210114
  Serious: Yes (Life-Threatening, Hospitalization, Other)
  Sender: FDA-Public Use
  Company Number: None

PATIENT
  Age: 42 Year
  Sex: Female
  Weight: 67.95 kg

DRUGS (5)
  1. DEXAMETHASONE. [Concomitant]
     Active Substance: DEXAMETHASONE
     Dates: start: 20200612
  2. VALTREX [Concomitant]
     Active Substance: VALACYCLOVIR HYDROCHLORIDE
     Dates: start: 20200601
  3. XARELTO [Concomitant]
     Active Substance: RIVAROXABAN
     Dates: start: 20200601
  4. KYPROLIS [Suspect]
     Active Substance: CARFILZOMIB
     Indication: PLASMA CELL MYELOMA
     Dosage: ?          OTHER FREQUENCY:WEEKLY;?
     Route: 041
     Dates: start: 20201002, end: 20201127
  5. DARZALEX [Concomitant]
     Active Substance: DARATUMUMAB
     Dates: start: 20200612

REACTIONS (6)
  - Blood lactate dehydrogenase increased [None]
  - Liver function test increased [None]
  - Thrombotic microangiopathy [None]
  - Renal failure [None]
  - COVID-19 pneumonia [None]
  - Red blood cell schistocytes present [None]

NARRATIVE: CASE EVENT DATE: 20201127
